FAERS Safety Report 10053324 (Version 1)
Quarter: 2014Q2

REPORT INFORMATION
  Report Type: Report from Study
  Country: BR (occurrence: BR)
  Receive Date: 20140402
  Receipt Date: 20140402
  Transmission Date: 20141212
  Serious: Yes (Other)
  Sender: FDA-Public Use
  Company Number: PHHY2014BR037702

PATIENT
  Sex: Female
  Weight: 79 kg

DRUGS (4)
  1. GILENYA [Suspect]
     Indication: MULTIPLE SCLEROSIS
     Dosage: 1 DF, QD
     Route: 048
     Dates: start: 201304
  2. ENALAPRIL [Concomitant]
     Indication: BLOOD PRESSURE
     Dosage: 10 MG, QD
     Route: 048
  3. CALCIUM [Concomitant]
     Indication: OSTEOPOROSIS
     Dosage: 1 DF, QD
  4. CALCIUM [Concomitant]
     Dosage: UNK UKN, QW

REACTIONS (2)
  - Retinal artery occlusion [Recovered/Resolved]
  - Ocular hyperaemia [Recovered/Resolved]
